FAERS Safety Report 13076033 (Version 1)
Quarter: 2016Q4

REPORT INFORMATION
  Report Type: Spontaneous
  Country: GB (occurrence: GB)
  Receive Date: 20161230
  Receipt Date: 20161230
  Transmission Date: 20170207
  Serious: Yes (Other)
  Sender: FDA-Public Use
  Company Number: GB-BIOMARINAP-GB-2016-111533

PATIENT
  Age: 27 Year
  Sex: Female

DRUGS (1)
  1. ALDURAZYME [Suspect]
     Active Substance: LARONIDASE
     Indication: PRODUCT USED FOR UNKNOWN INDICATION
     Dosage: UNK, QW
     Route: 041

REACTIONS (4)
  - Fatigue [Recovering/Resolving]
  - Dyspnoea exertional [Not Recovered/Not Resolved]
  - Visual acuity reduced [Unknown]
  - Dyspnoea at rest [Not Recovered/Not Resolved]

NARRATIVE: CASE EVENT DATE: 201610
